FAERS Safety Report 4498364-6 (Version None)
Quarter: 2004Q4

REPORT INFORMATION
  Report Type: 
  Country: None (occurrence: None)
  Receive Date: 20041105
  Receipt Date: 20041022
  Transmission Date: 20050328
  Serious: Yes (Hospitalization)
  Sender: FDA-Public Use
  Company Number: 12740239

PATIENT
  Age: 48 Year
  Sex: Male

DRUGS (6)
  1. REVIA [Suspect]
     Dosage: 50 MILLIGRAM , ORAL
     Route: 048
     Dates: start: 20040114, end: 20040207
  2. INSULATARD NPH HUMAN [Concomitant]
  3. PANCREON (PANCREATIN) [Concomitant]
  4. CAMPRAL (ACAMPROSATE) [Concomitant]
  5. HUMALOG [Concomitant]
  6. DIMOR (LOPERAMIDE HCL) [Concomitant]

REACTIONS (4)
  - ACIDOSIS [None]
  - DIARRHOEA [None]
  - HYPERGLYCAEMIA [None]
  - VOMITING [None]
